FAERS Safety Report 16218407 (Version 3)
Quarter: 2019Q2

REPORT INFORMATION
  Report Type: Spontaneous
  Country: US (occurrence: US)
  Receive Date: 20190419
  Receipt Date: 20190620
  Transmission Date: 20190711
  Serious: Yes (Other)
  Sender: FDA-Public Use
  Company Number: US-PFIZER INC-2019167026

PATIENT
  Age: 61 Year
  Sex: Female

DRUGS (1)
  1. IBRANCE [Suspect]
     Active Substance: PALBOCICLIB
     Dosage: 125 MG, CYCLIC(1 CAP PO QD X21D THEN 7D OFF)/[DAILY FOR 21 CONSECUTIVE DAYS THEN TAKE 7 DAYS OFF]
     Route: 048

REACTIONS (3)
  - Renal failure [Unknown]
  - Full blood count decreased [Unknown]
  - White blood cell count decreased [Unknown]
